FAERS Safety Report 6133230-1 (Version None)
Quarter: 2009Q1

REPORT INFORMATION
  Report Type: 
  Country: None (occurrence: None)
  Receive Date: 20090324
  Receipt Date: 20090324
  Transmission Date: 20090719
  Serious: Yes (Life-Threatening)
  Sender: FDA-Public Use
  Company Number: None

PATIENT
  Age: 56 Year
  Sex: Female
  Weight: 48.5349 kg

DRUGS (3)
  1. LORTAB [Suspect]
     Indication: ENDOSCOPY
     Dosage: I TOOK 1 TABLET AT NIGHT
     Dates: start: 20090315, end: 20090315
  2. LORTAB [Suspect]
     Indication: SEPTOPLASTY
     Dosage: I TOOK 1 TABLET AT NIGHT
     Dates: start: 20090315, end: 20090315
  3. HYDROCODONE BITARTRATE + ACETAMINOPHEN [Concomitant]

REACTIONS (2)
  - NIGHTMARE [None]
  - SCREAMING [None]
